FAERS Safety Report 4684816-2 (Version None)
Quarter: 2005Q2

REPORT INFORMATION
  Report Type: 
  Country: None (occurrence: None)
  Receive Date: 20050606
  Receipt Date: 20050301
  Transmission Date: 20051028
  Serious: No
  Sender: FDA-Public Use
  Company Number: USA050391991

PATIENT
  Age: 77 Year
  Sex: Male

DRUGS (2)
  1. ALIMTA [Suspect]
     Indication: NON-SMALL CELL LUNG CANCER
     Dosage: 900 MG
     Dates: start: 20050201
  2. GEMZAR [Suspect]
     Indication: NON-SMALL CELL LUNG CANCER

REACTIONS (3)
  - NEUTROPENIA [None]
  - RASH [None]
  - RASH MACULO-PAPULAR [None]
